FAERS Safety Report 25879299 (Version 2)
Quarter: 2025Q4

REPORT INFORMATION
  Report Type: Spontaneous
  Country: US (occurrence: US)
  Receive Date: 20251003
  Receipt Date: 20251007
  Transmission Date: 20260117
  Serious: Yes (Life-Threatening, Hospitalization, Other)
  Sender: PFIZER
  Company Number: US-MLMSERVICE-20250923-PI650618-00317-1

PATIENT
  Age: 10 Year

DRUGS (7)
  1. TOBRAMYCIN [Suspect]
     Active Substance: TOBRAMYCIN
     Indication: Pseudomonas infection
     Dosage: 470 MG (10 MG/KG) IV EVERY 24 H
     Route: 042
  2. TOBRAMYCIN [Suspect]
     Active Substance: TOBRAMYCIN
     Indication: Staphylococcal infection
  3. TOBRAMYCIN [Suspect]
     Active Substance: TOBRAMYCIN
     Indication: Cystic fibrosis
  4. CEFTAZIDIME [Concomitant]
     Active Substance: CEFTAZIDIME
     Indication: Pseudomonas infection
     Dosage: 2000 MG, 3X/DAY FREQ:8 H;2000 MG (42.5 MG/KG; MAX: 2000 MG/DOSE) IV EVERY 8 H
     Route: 042
  5. CEFTAZIDIME [Concomitant]
     Active Substance: CEFTAZIDIME
     Indication: Staphylococcal bacteraemia
  6. SULFAMETHOXAZOLE\TRIMETHOPRIM [Concomitant]
     Active Substance: SULFAMETHOXAZOLE\TRIMETHOPRIM
     Indication: Pseudomonas infection
     Dosage: UNK, 2X/DAY 160-800 MG (3.3 MG TRIMETHOPRIM/ KG; MAX: 160 MG TRIMETHOPRIM/DOSE) BY MOUTH EVERY 12 H
     Route: 048
  7. SULFAMETHOXAZOLE\TRIMETHOPRIM [Concomitant]
     Active Substance: SULFAMETHOXAZOLE\TRIMETHOPRIM
     Indication: Staphylococcal bacteraemia

REACTIONS (1)
  - Anaphylactic reaction [Recovered/Resolved]
